FAERS Safety Report 7411203-6 (Version None)
Quarter: 2011Q2

REPORT INFORMATION
  Report Type: 
  Country: None (occurrence: None)
  Receive Date: 20110413
  Receipt Date: 20110411
  Transmission Date: 20111010
  Serious: Yes (Death)
  Sender: FDA-Public Use
  Company Number: US-RB-025022-11

PATIENT
  Sex: Male

DRUGS (4)
  1. HYDROCODONE [Concomitant]
     Indication: PAIN
     Dosage: DOSING INFORMATION UNKNOWN
  2. CLONAZEPAM [Concomitant]
     Indication: SLEEP DISORDER
  3. FENTANYL-100 [Concomitant]
     Indication: PAIN
     Dosage: DOSING INFORMATION UNKNOWN
  4. SUBOXONE [Suspect]
     Indication: DRUG DEPENDENCE
     Dosage: 8-16MG DAILY
     Route: 060
     Dates: start: 20100422

REACTIONS (2)
  - INTENTIONAL OVERDOSE [None]
  - COMPLETED SUICIDE [None]
